FAERS Safety Report 5636172-0 (Version None)
Quarter: 2008Q1

REPORT INFORMATION
  Report Type: 
  Country: None (occurrence: None)
  Receive Date: 20080220
  Receipt Date: 20080204
  Transmission Date: 20080703
  Serious: Yes (Other)
  Sender: FDA-Public Use
  Company Number: S08-NOR-00527-01

PATIENT
  Age: 64 Year
  Sex: Male

DRUGS (1)
  1. CAMPRAL [Suspect]

REACTIONS (5)
  - ABDOMINAL PAIN UPPER [None]
  - HEPATITIS [None]
  - JAUNDICE [None]
  - NAUSEA [None]
  - VOMITING [None]
